FAERS Safety Report 13725896 (Version 1)
Quarter: 2017Q3

REPORT INFORMATION
  Report Type: Spontaneous
  Country: US (occurrence: US)
  Receive Date: 20170707
  Receipt Date: 20170707
  Transmission Date: 20171127
  Serious: Yes (Other)
  Sender: FDA-Public Use
  Company Number: US-ALEMBIC PHARMACUETICALS LIMITED-2017SCAL000575

PATIENT

DRUGS (1)
  1. LEFLUNOMIDE. [Suspect]
     Active Substance: LEFLUNOMIDE
     Indication: RHEUMATOID ARTHRITIS
     Dosage: 10 MG, OD
     Route: 048
     Dates: start: 201705, end: 20170609

REACTIONS (3)
  - Nerve injury [Recovering/Resolving]
  - Toothache [Recovering/Resolving]
  - Sensitivity of teeth [Recovering/Resolving]

NARRATIVE: CASE EVENT DATE: 201705
